FAERS Safety Report 7261173-9 (Version None)
Quarter: 2011Q1

REPORT INFORMATION
  Report Type: 
  Country: None (occurrence: None)
  Receive Date: 20110130
  Receipt Date: 20100920
  Transmission Date: 20110831
  Serious: No
  Sender: FDA-Public Use
  Company Number: US-ABBOTT-10P-163-0671942-00

PATIENT
  Age: 66 Year
  Sex: Female

DRUGS (14)
  1. KLOR-PHOR [Concomitant]
     Indication: PRODUCT USED FOR UNKNOWN INDICATION
  2. SYNTHROID [Concomitant]
     Indication: HYPOTHYROIDISM
  3. FLOVENT [Concomitant]
     Indication: ASTHMA
  4. VENTOLIN [Concomitant]
     Indication: ASTHMA
  5. FAMOTIDINE [Concomitant]
     Indication: ABDOMINAL DISCOMFORT
  6. DARVOCET-N 100 [Concomitant]
     Indication: PAIN
  7. DIOVAN [Concomitant]
     Indication: PRODUCT USED FOR UNKNOWN INDICATION
  8. PREDNISONE [Concomitant]
     Indication: CROHN'S DISEASE
  9. FIORICET [Concomitant]
     Indication: MIGRAINE
     Dosage: 50/325/40MG
  10. HUMIRA [Suspect]
     Indication: CROHN'S DISEASE
     Dates: start: 20100601
  11. K+ [Concomitant]
     Indication: MINERAL SUPPLEMENTATION
  12. FELODIPINE [Concomitant]
     Indication: PRODUCT USED FOR UNKNOWN INDICATION
  13. NASACORT [Concomitant]
     Indication: NASAL CONGESTION
     Dosage: IN EACH NOSTRIL
  14. TEMAZEPAM [Concomitant]
     Indication: INSOMNIA

REACTIONS (3)
  - INJECTION SITE HAEMATOMA [None]
  - INJECTION SITE PAIN [None]
  - DEVICE MALFUNCTION [None]
